FAERS Safety Report 15345707 (Version 1)
Quarter: 2018Q4

REPORT INFORMATION
  Report Type: Spontaneous
  Country: DE (occurrence: DE)
  Receive Date: 20180904
  Receipt Date: 20180904
  Transmission Date: 20190204
  Serious: Yes (Hospitalization)
  Sender: FDA-Public Use
  Company Number: DE-TEVA-2018-DE-951185

PATIENT
  Age: 66 Year
  Sex: Male

DRUGS (3)
  1. CARBOPLATIN ACTAVIS 10 MG/ML INFUSIONSLSG.-KONZ. [Suspect]
     Active Substance: CARBOPLATIN
  2. ALIMTA [Suspect]
     Active Substance: PEMETREXED DISODIUM
     Dates: start: 20180628
  3. ALIMTA [Suspect]
     Active Substance: PEMETREXED DISODIUM
     Dates: start: 20180628

REACTIONS (2)
  - Rectal haemorrhage [Unknown]
  - Proctitis [Unknown]

NARRATIVE: CASE EVENT DATE: 20180705
